FAERS Safety Report 20974079 (Version 1)
Quarter: 2022Q2

REPORT INFORMATION
  Report Type: Spontaneous
  Country: CN (occurrence: CN)
  Receive Date: 20220617
  Receipt Date: 20220617
  Transmission Date: 20220720
  Serious: Yes (Hospitalization)
  Sender: FDA-Public Use
  Company Number: ALC2022CN002854

PATIENT
  Age: 68 Year
  Sex: Female

DRUGS (1)
  1. ALCAINE [Suspect]
     Active Substance: PROPARACAINE HYDROCHLORIDE
     Indication: Squamous cell carcinoma
     Dosage: 0.2 ML, QD
     Route: 031
     Dates: start: 20220418, end: 20220419

REACTIONS (1)
  - Corneal epithelium defect [Recovering/Resolving]

NARRATIVE: CASE EVENT DATE: 20220419
